FAERS Safety Report 5893931-7 (Version None)
Quarter: 2008Q3

REPORT INFORMATION
  Report Type: 
  Country: None (occurrence: None)
  Receive Date: 20080923
  Receipt Date: 20080911
  Transmission Date: 20090109
  Serious: Yes (Other)
  Sender: FDA-Public Use
  Company Number: US-ELI_LILLY_AND_COMPANY-US200809002860

PATIENT
  Sex: Female

DRUGS (5)
  1. BYETTA [Suspect]
     Indication: TYPE 2 DIABETES MELLITUS
     Dosage: 5 UG, 2/D
     Route: 058
     Dates: start: 20080701, end: 20080807
  2. BYETTA [Suspect]
     Dosage: 10 UG, 2/D
     Route: 058
     Dates: start: 20080808
  3. ACTOS [Concomitant]
     Dosage: 45 MG, DAILY (1/D)
     Route: 048
  4. GLUCOPHAGE [Concomitant]
     Dosage: 850 MG, 3/D
     Route: 048
  5. GLYNASE [Concomitant]
     Dosage: 6 MG, 2/D
     Route: 048

REACTIONS (10)
  - ASTHENIA [None]
  - EMOTIONAL DISTRESS [None]
  - FACIAL BONES FRACTURE [None]
  - FALL [None]
  - FOOD ALLERGY [None]
  - HYPERSENSITIVITY [None]
  - HYPOTENSION [None]
  - LOSS OF CONSCIOUSNESS [None]
  - VOMITING [None]
  - WEIGHT DECREASED [None]
